FAERS Safety Report 7403266-9 (Version None)
Quarter: 2011Q2

REPORT INFORMATION
  Report Type: 
  Country: None (occurrence: None)
  Receive Date: 20110408
  Receipt Date: 20110401
  Transmission Date: 20111010
  Serious: Yes (Death, Hospitalization, Other)
  Sender: FDA-Public Use
  Company Number: US-JNJFOC-20110401894

PATIENT
  Age: 53 Year
  Sex: Male
  Weight: 61.59 kg

DRUGS (10)
  1. RITUXIMAB [Suspect]
     Indication: B-CELL LYMPHOMA
     Dosage: DAY 1, BEGINNING WITH CYCLE 1
     Route: 042
  2. PREDNISONE [Suspect]
     Indication: B-CELL LYMPHOMA
     Dosage: DAYS 1-5 OF EACH CYCLE
     Route: 048
  3. CYCLOPHOSPHAMIDE [Suspect]
     Dosage: DAY 1
     Route: 042
  4. RITUXIMAB [Suspect]
     Dosage: DAY 1, BEGINNING WITH CYCLE 1
     Route: 042
  5. DOXORUBICIN HCL [Suspect]
     Indication: B-CELL LYMPHOMA
     Dosage: DAY 1
     Route: 042
  6. DOXORUBICIN HCL [Suspect]
     Dosage: DAY 1, BEGINNING WITH CYCLE 1
     Route: 042
  7. VINCRISTINE [Suspect]
     Indication: B-CELL LYMPHOMA
     Dosage: DAY 1, TOTAL DOSE NOT TO EXCEED 2 MG
     Route: 042
  8. VINCRISTINE [Suspect]
     Route: 042
  9. PREDNISONE [Suspect]
     Route: 048
  10. CYCLOPHOSPHAMIDE [Suspect]
     Indication: B-CELL LYMPHOMA
     Route: 042

REACTIONS (4)
  - NEUROPATHY PERIPHERAL [None]
  - LEUKOENCEPHALOPATHY [None]
  - DEATH [None]
  - PERIPHERAL MOTOR NEUROPATHY [None]
